FAERS Safety Report 22263294 (Version 2)
Quarter: 2023Q2

REPORT INFORMATION
  Report Type: Spontaneous
  Country: US (occurrence: US)
  Receive Date: 20230428
  Receipt Date: 20230503
  Transmission Date: 20230721
  Serious: No
  Sender: FDA-Public Use
  Company Number: US-002147023-NVSC2023US092713

PATIENT
  Sex: Female

DRUGS (1)
  1. ESTRADIOL [Suspect]
     Active Substance: ESTRADIOL
     Indication: Osteoporosis prophylaxis
     Dosage: UNK
     Route: 062

REACTIONS (2)
  - Product adhesion issue [Recovered/Resolved]
  - Drug ineffective [Recovered/Resolved]
